FAERS Safety Report 8928135 (Version 2)
Quarter: 2012Q4

REPORT INFORMATION
  Report Type: 
  Country: US (occurrence: US)
  Receive Date: 20121128
  Receipt Date: 20121212
  Transmission Date: 20130627
  Serious: Yes (Hospitalization, Other)
  Sender: FDA-Public Use
  Company Number: US-BIOGENIDEC-2012BI054566

PATIENT
  Sex: Female

DRUGS (3)
  1. AVONEX [Suspect]
     Indication: MULTIPLE SCLEROSIS
     Route: 030
     Dates: start: 20111208
  2. BACLOFEN [Concomitant]
  3. MEDICATION (NOS) [Concomitant]

REACTIONS (7)
  - Fall [Recovered/Resolved]
  - Coronary artery disease [Not Recovered/Not Resolved]
  - Nerve injury [Recovered/Resolved]
  - Drug withdrawal syndrome [Recovered/Resolved]
  - Sinus congestion [Not Recovered/Not Resolved]
  - Feeling hot [Recovered/Resolved]
  - Fatigue [Recovered/Resolved]
